FAERS Safety Report 10053387 (Version 2)
Quarter: 2014Q2

REPORT INFORMATION
  Report Type: Spontaneous
  Country: US (occurrence: US)
  Receive Date: 20140402
  Receipt Date: 20140507
  Transmission Date: 20141212
  Serious: No
  Sender: FDA-Public Use
  Company Number: US-PFIZER INC-2014089080

PATIENT
  Age: 44 Year
  Sex: Male

DRUGS (3)
  1. VFEND [Suspect]
     Indication: ASPERGILLUS INFECTION
     Dosage: 200 MG, 2X/DAY
     Route: 048
     Dates: start: 20140311, end: 20140327
  2. VANCOMYCIN [Concomitant]
     Indication: EMPYEMA
     Dosage: 1.25 G, 1X/DAY
     Route: 042
     Dates: start: 20140224, end: 20140324
  3. VANCOMYCIN [Concomitant]
     Indication: BACTERIAL INFECTION

REACTIONS (4)
  - Hypersensitivity [Recovered/Resolved]
  - Rash generalised [Recovered/Resolved]
  - Skin exfoliation [Recovered/Resolved]
  - Pruritus [Recovered/Resolved]
